FAERS Safety Report 23535535 (Version 1)
Quarter: 2024Q1

REPORT INFORMATION
  Report Type: Spontaneous
  Country: CA (occurrence: None)
  Receive Date: 20240218
  Receipt Date: 20240218
  Transmission Date: 20240410
  Serious: Yes (Hospitalization)
  Sender: FDA-Public Use
  Company Number: 2024A024553

PATIENT
  Age: 35 Year
  Sex: Female

DRUGS (7)
  1. QUETIAPINE [Suspect]
     Active Substance: QUETIAPINE
     Route: 048
  2. PROPRANOLOL [Suspect]
     Active Substance: PROPRANOLOL HYDROCHLORIDE
  3. CLONAZEPAM [Suspect]
     Active Substance: CLONAZEPAM
  4. PRAZOSIN [Suspect]
     Active Substance: PRAZOSIN
  5. LEVOTHYROXINE [Suspect]
     Active Substance: LEVOTHYROXINE\LEVOTHYROXINE SODIUM
  6. TEMAZEPAM [Suspect]
     Active Substance: TEMAZEPAM
  7. AMPHETAMINE SULFATE\DEXTROAMPHETAMINE [Suspect]
     Active Substance: AMPHETAMINE SULFATE\DEXTROAMPHETAMINE

REACTIONS (8)
  - Drug abuse [Unknown]
  - Suicidal ideation [Unknown]
  - Arthralgia [Unknown]
  - Myalgia [Unknown]
  - Restlessness [Unknown]
  - Mydriasis [Unknown]
  - Piloerection [Unknown]
  - Anxiety [Unknown]
